FAERS Safety Report 18305629 (Version 1)
Quarter: 2020Q3

REPORT INFORMATION
  Report Type: Spontaneous
  Country: US (occurrence: US)
  Receive Date: 20200923
  Receipt Date: 20200923
  Transmission Date: 20201103
  Serious: Yes (Hospitalization)
  Sender: FDA-Public Use
  Company Number: None

PATIENT
  Age: 43 Year
  Sex: Female
  Weight: 98.55 kg

DRUGS (1)
  1. HYDROXYCHLOROQUINE [Suspect]
     Active Substance: HYDROXYCHLOROQUINE
     Indication: SYSTEMIC LUPUS ERYTHEMATOSUS
     Dosage: ?          QUANTITY:1 TABLET(S);?
     Route: 048
     Dates: start: 20200827, end: 20200906

REACTIONS (15)
  - Rash [None]
  - Body temperature increased [None]
  - Hepatic enzyme increased [None]
  - Lip swelling [None]
  - Rash erythematous [None]
  - Hypersensitivity [None]
  - Skin burning sensation [None]
  - White blood cell count increased [None]
  - Skin exfoliation [None]
  - Drug ineffective [None]
  - Chapped lips [None]
  - Pustule [None]
  - Lip pain [None]
  - Acute generalised exanthematous pustulosis [None]
  - Pain of skin [None]

NARRATIVE: CASE EVENT DATE: 20200907
